FAERS Safety Report 9441749 (Version 2)
Quarter: 2013Q3

REPORT INFORMATION
  Report Type: Report from Study
  Country: US (occurrence: US)
  Receive Date: 20130806
  Receipt Date: 20130806
  Transmission Date: 20140515
  Serious: Yes (Other)
  Sender: FDA-Public Use
  Company Number: US-ROCHE-1255701

PATIENT
  Sex: Female

DRUGS (19)
  1. XOLAIR [Suspect]
     Indication: ASTHMA
     Route: 065
  2. DIFLUCAN [Concomitant]
  3. CRESTOR [Concomitant]
     Route: 048
  4. ATORVASTATIN [Concomitant]
     Dosage: 1 TABLET
     Route: 048
  5. AZITHROMYCIN [Concomitant]
     Route: 065
  6. VENTOLIN [Concomitant]
     Dosage: 108 MCG/ACT 2 PUFFS
     Route: 065
  7. OMEPRAZOLE [Concomitant]
     Dosage: 1 TABLET
     Route: 048
  8. EVISTA [Concomitant]
     Dosage: 1 TABLET
     Route: 048
  9. TRAMADOL HCL [Concomitant]
     Dosage: 1 -2 TABLET
     Route: 048
  10. MICARDIS HCT [Concomitant]
     Dosage: 1 TABLET, 80-25 MG 1 TAB PO DAILY
     Route: 048
  11. PREDNISONE [Concomitant]
     Dosage: 1 TABLET
     Route: 048
  12. PREDNISONE [Concomitant]
     Dosage: 1 TABLET
     Route: 048
  13. PREDNISONE [Concomitant]
     Dosage: HALF TABLET
     Route: 048
  14. SERTRALINE HCL [Concomitant]
     Route: 048
  15. SPIRIVA [Concomitant]
     Dosage: 1 PUFF
     Route: 065
  16. SYMBICORT [Concomitant]
     Dosage: 160-4.5 MCG HCT 2PUFFS
     Route: 065
  17. ASA [Concomitant]
     Route: 065
  18. ZYRTEC [Concomitant]
     Route: 048
  19. NASONEX [Concomitant]
     Dosage: 50 MCG/ACT 2 SPRAY EACH NOSTRIL DAILY.
     Route: 065

REACTIONS (12)
  - Chronic obstructive pulmonary disease [Unknown]
  - Asthma [Unknown]
  - Dyspnoea [Unknown]
  - Oxygen supplementation [Unknown]
  - Fatigue [Unknown]
  - Pyrexia [Unknown]
  - Productive cough [Unknown]
  - Nasal oedema [Unknown]
  - Prolonged expiration [Unknown]
  - Obstructive airways disorder [Unknown]
  - Hyperaemia [Unknown]
  - Breath sounds abnormal [Unknown]
